FAERS Safety Report 9238793 (Version 1)
Quarter: 2013Q1

REPORT INFORMATION
  Report Type: Spontaneous
  Country: US (occurrence: None)
  Receive Date: 20121107
  Receipt Date: 20121107
  Transmission Date: 20140127
  Serious: No
  Sender: FDA-Public Use
  Company Number: 2012HGS-003812

PATIENT
  Age: 25 Year
  Sex: Female

DRUGS (9)
  1. BENLYSTA [Suspect]
     Route: 041
     Dates: start: 20120712
  2. PREDNISONE (PREDNISONE) (PREDNISONE) [Concomitant]
  3. CORTISONE (CORTISONE) (CORTISONE) [Concomitant]
  4. IMIPRAMINE (IMIPRAMINE) (IMIPRAMINE) [Concomitant]
  5. IMURAN (AZATHIOPRINE) (AZATHIOPRINE) [Concomitant]
  6. PLAQUENIL (HYDROXYCHLOROQUINE SULFATE) (HYDROXYCHLOROQUINE SULFATE) [Concomitant]
  7. ALTANA (MEDAZEPAM) (MEDAZEPAM) [Concomitant]
  8. CELLCEPT (MYCOPHENOLATE MOFETIL) (MYCOPHENOLATE MOFETIL) [Concomitant]
  9. BENADRYL (DIPHENHYDRAMINE HYDROCHLORIDE) (DEPHENHYDRAMINE HYDROCHLORIDE) [Concomitant]

REACTIONS (4)
  - Rash pustular [None]
  - Arthralgia [None]
  - Rash [None]
  - Rash generalised [None]
